FAERS Safety Report 18230742 (Version 4)
Quarter: 2020Q4

REPORT INFORMATION
  Report Type: Spontaneous
  Country: US (occurrence: US)
  Receive Date: 20200903
  Receipt Date: 20201016
  Transmission Date: 20210113
  Serious: Yes (Hospitalization, Other)
  Sender: FDA-Public Use
  Company Number: US-B.I. PHARMACEUTICALS,INC./RIDGEFIELD-2020-BI-044627

PATIENT
  Age: 58 Year
  Sex: Male
  Weight: 112.49 kg

DRUGS (19)
  1. ROXICODONE [Concomitant]
     Active Substance: OXYCODONE HYDROCHLORIDE
     Indication: PAIN
     Dosage: TAKE 1 TABLET EVERY 6 HOURS AS NEEDED
     Route: 048
  2. TYLENOL [Concomitant]
     Active Substance: ACETAMINOPHEN
     Indication: PAIN
     Dosage: TAKE 2 TABLETS 3 TIMES DAILY
     Route: 048
  3. MEVACOR [Concomitant]
     Active Substance: LOVASTATIN
     Indication: DRUG THERAPY
     Dosage: NIGHTLY AT BEDTIME
     Route: 048
  4. KOMBIGLYZE XR [METFORMIN;SAXAGLIPTIN] [Concomitant]
     Indication: TYPE 2 DIABETES MELLITUS
     Dosage: STRENGTH: 2.5/1000MG BID
     Route: 065
  5. PROCARDIA [Concomitant]
     Active Substance: NIFEDIPINE
     Indication: ESSENTIAL HYPERTENSION
     Dosage: EXTENDED RELEASE 24 HOUR
     Route: 048
  6. ALKA SELTZER HEARTBURN + GAS RELIEFCHEWS [Concomitant]
     Indication: FLATULENCE
     Dosage: 750-80MG CHEW?TAKE 1 CHEWABLE TABLET AS NEEDED FREQUENCY:
     Route: 048
  7. NEURONTIN [Concomitant]
     Active Substance: GABAPENTIN
     Indication: NEURALGIA
     Dosage: TAKE 2 CAPSULES 3 TIMES DAILY
     Route: 048
  8. NOVOLOG [Concomitant]
     Active Substance: INSULIN ASPART
     Indication: TYPE 2 DIABETES MELLITUS
     Dosage: 100 UNIT/ML (70-30)?DOSE: 24 UNITS QAM, 14 UNITS QPM
     Route: 065
  9. MALE MULTIPLE [Concomitant]
     Indication: SUPPLEMENTATION THERAPY
     Dosage: TAKE 1 TABLET EVERY MORNING
     Route: 048
  10. ZOLOFT [Concomitant]
     Active Substance: SERTRALINE HYDROCHLORIDE
     Indication: SLEEP DISORDER
     Dosage: NIGHTLY AT BEDTIME
     Route: 048
  11. NORVASC [Concomitant]
     Active Substance: AMLODIPINE BESYLATE
     Indication: HYPERTENSION
     Route: 048
  12. ASPIRIN EC [Concomitant]
     Active Substance: ASPIRIN
     Indication: DRUG THERAPY
     Dosage: EVERY MORNING
     Route: 048
  13. ALKA SELTZER HEARTBURN + GAS RELIEFCHEWS [Concomitant]
     Indication: DYSPEPSIA
  14. KOMBIGLYZE XR [METFORMIN;SAXAGLIPTIN] [Concomitant]
     Indication: HYPERGLYCAEMIA
  15. ZOLOFT [Concomitant]
     Active Substance: SERTRALINE HYDROCHLORIDE
     Indication: DEPRESSION
     Dosage: NIGHTLY AT BEDTIME
     Route: 048
  16. APRESOLINE HYDROCHLORIDE [Concomitant]
     Active Substance: HYDRALAZINE HYDROCHLORIDE
     Indication: HYPERTENSION
     Route: 048
  17. JARDIANCE [Suspect]
     Active Substance: EMPAGLIFLOZIN
     Indication: TYPE 2 DIABETES MELLITUS
     Route: 048
     Dates: start: 20151221, end: 20171105
  18. CRESTOR [Concomitant]
     Active Substance: ROSUVASTATIN CALCIUM
     Indication: HYPERLIPIDAEMIA
     Route: 048
  19. COREG [Concomitant]
     Active Substance: CARVEDILOL
     Indication: HYPERTENSION
     Route: 048

REACTIONS (1)
  - Fournier^s gangrene [Unknown]

NARRATIVE: CASE EVENT DATE: 20171105
